FAERS Safety Report 4678697-0 (Version None)
Quarter: 2005Q2

REPORT INFORMATION
  Report Type: 
  Country: None (occurrence: None)
  Receive Date: 20050531
  Receipt Date: 20050518
  Transmission Date: 20051028
  Serious: Yes (Hospitalization)
  Sender: FDA-Public Use
  Company Number: 2005AP000433

PATIENT
  Age: 84 Year
  Sex: Female

DRUGS (6)
  1. SALBUTAMOL SULFATE (SALBUTAMOL SULFATE) (5MG) [Suspect]
     Indication: CHRONIC OBSTRUCTIVE AIRWAYS DISEASE EXACERBATED
     Dosage: 5 MG;Q2H;INH
  2. AMOXICILLIN [Concomitant]
  3. ALBUTEROL SULFATE [Concomitant]
  4. IPARTROPIUM BROMIDE [Concomitant]
  5. INHALATION SOLUTION [Concomitant]
  6. ALBNDRONATE SODIUM [Concomitant]

REACTIONS (4)
  - ACUTE MYOCARDIAL INFARCTION [None]
  - ATRIAL FIBRILLATION [None]
  - ELECTROCARDIOGRAM ST SEGMENT ELEVATION [None]
  - VENTRICULAR HYPOKINESIA [None]
